FAERS Safety Report 18233486 (Version 2)
Quarter: 2020Q3

REPORT INFORMATION
  Report Type: Spontaneous
  Country: US (occurrence: US)
  Receive Date: 20200904
  Receipt Date: 20200914
  Transmission Date: 20201103
  Serious: Yes (Other)
  Sender: FDA-Public Use
  Company Number: US-ELI_LILLY_AND_COMPANY-US202008011100

PATIENT
  Age: 68 Year
  Sex: Female

DRUGS (4)
  1. TRULICITY [Suspect]
     Active Substance: DULAGLUTIDE
     Indication: GLYCOSYLATED HAEMOGLOBIN INCREASED
     Dosage: 0.75 MG, WEEKLY (1/W), ON MONDAYS
     Route: 065
     Dates: start: 202006
  2. HUMULIN N [Suspect]
     Active Substance: INSULIN HUMAN
     Indication: DIABETES MELLITUS
     Dosage: 50 U, BID
     Route: 065
     Dates: start: 2004
  3. HUMULIN N [Suspect]
     Active Substance: INSULIN HUMAN
     Dosage: 50 U, BID
     Route: 065
  4. HUMULIN N [Suspect]
     Active Substance: INSULIN HUMAN
     Indication: DIABETES MELLITUS
     Dosage: UNK UNK, UNKNOWN
     Route: 065
     Dates: start: 2004

REACTIONS (8)
  - Blood glucose decreased [Unknown]
  - Bipolar disorder [Unknown]
  - Glycosylated haemoglobin increased [Recovered/Resolved]
  - Neoplasm malignant [Unknown]
  - Blood glucose increased [Unknown]
  - Anxiety [Recovered/Resolved]
  - Dizziness [Unknown]
  - Tremor [Unknown]

NARRATIVE: CASE EVENT DATE: 2018
